FAERS Safety Report 14984186 (Version 1)
Quarter: 2018Q2

REPORT INFORMATION
  Report Type: Report from Study
  Country: None (occurrence: US)
  Receive Date: 20180607
  Receipt Date: 20180607
  Transmission Date: 20180711
  Serious: Yes (Other)
  Sender: FDA-Public Use
  Company Number: US-ABBVIE-18P-163-2376642-00

PATIENT
  Sex: Male

DRUGS (5)
  1. FUROSEMIDE. [Concomitant]
     Active Substance: FUROSEMIDE
     Indication: PRODUCT USED FOR UNKNOWN INDICATION
  2. HYDROCORTISONE ACETATE PRAMOXINE HCL [Concomitant]
     Active Substance: HYDROCORTISONE ACETATE\PRAMOXINE HYDROCHLORIDE
     Indication: PRODUCT USED FOR UNKNOWN INDICATION
  3. THIAMINE HCL [Concomitant]
     Active Substance: THIAMINE HYDROCHLORIDE
     Indication: PRODUCT USED FOR UNKNOWN INDICATION
  4. MAVYRET [Suspect]
     Active Substance: GLECAPREVIR\PIBRENTASVIR
     Indication: CHRONIC HEPATITIS C
     Dosage: WITH FOOD
     Route: 048
     Dates: start: 201801
  5. FOLIC ACID. [Concomitant]
     Active Substance: FOLIC ACID
     Indication: PRODUCT USED FOR UNKNOWN INDICATION

REACTIONS (3)
  - Fatigue [Not Recovered/Not Resolved]
  - Surgery [Unknown]
  - Asthenia [Not Recovered/Not Resolved]

NARRATIVE: CASE EVENT DATE: 2018
